FAERS Safety Report 24093022 (Version 1)
Quarter: 2024Q3

REPORT INFORMATION
  Report Type: Spontaneous
  Country: FR (occurrence: None)
  Receive Date: 20240715
  Receipt Date: 20240715
  Transmission Date: 20241016
  Serious: Yes (Other)
  Sender: ASTRAZENECA
  Company Number: 2024A139713

PATIENT
  Age: 65 Year
  Sex: Female

DRUGS (1)
  1. IMFINZI [Suspect]
     Active Substance: DURVALUMAB
     Indication: Non-small cell lung cancer
     Dosage: 10 MG/KG Q2W
     Route: 017
     Dates: start: 20211029, end: 20221028

REACTIONS (8)
  - Toxicity to various agents [Unknown]
  - Epithelitis [Unknown]
  - Asthenia [Unknown]
  - Nausea [Unknown]
  - Vomiting [Unknown]
  - Diarrhoea [Unknown]
  - Weight decreased [Unknown]
  - Off label use [Unknown]
